FAERS Safety Report 15000144 (Version 3)
Quarter: 2019Q2

REPORT INFORMATION
  Report Type: Spontaneous
  Country: US (occurrence: US)
  Receive Date: 20180612
  Receipt Date: 20190425
  Transmission Date: 20190711
  Serious: Yes (Other)
  Sender: FDA-Public Use
  Company Number: US-PFIZER INC-2018237120

PATIENT
  Age: 68 Year
  Sex: Female
  Weight: 61 kg

DRUGS (5)
  1. IBRANCE [Suspect]
     Active Substance: PALBOCICLIB
     Indication: BREAST CANCER STAGE IV
     Dosage: 125 MG, CYCLIC (ONCE DAILY BY MOUTH FOR 21 DAYS AND 7 DAYS OFF)
     Route: 048
  2. LETROZOLE. [Suspect]
     Active Substance: LETROZOLE
     Indication: BREAST CANCER STAGE IV
     Dosage: UNK, 1X/DAY (2.5)
  3. SYNTHROID [Suspect]
     Active Substance: LEVOTHYROXINE SODIUM
     Indication: THYROID DISORDER
     Dosage: 88, UNKNOWN UNIT, 1X/DAY (IN THE MORNING)
     Route: 048
  4. LATANOPROST. [Concomitant]
     Active Substance: LATANOPROST
     Dosage: UNK, 1X/DAY (2.5)
  5. TIMOLOL. [Concomitant]
     Active Substance: TIMOLOL
     Dosage: UNK, 1X/DAY (0.5)

REACTIONS (5)
  - Skin disorder [Recovered/Resolved]
  - Blister [Not Recovered/Not Resolved]
  - Pigmentation disorder [Unknown]
  - Dry eye [Unknown]
  - Glaucoma [Unknown]
